FAERS Safety Report 24087999 (Version 1)
Quarter: 2024Q3

REPORT INFORMATION
  Report Type: Spontaneous
  Country: AU (occurrence: AU)
  Receive Date: 20240715
  Receipt Date: 20240715
  Transmission Date: 20241017
  Serious: Yes (Death, Other)
  Sender: NOVO NORDISK
  Company Number: None

PATIENT
  Sex: Male

DRUGS (22)
  1. RYZODEG 70/30 [Suspect]
     Active Substance: INSULIN ASPART\INSULIN DEGLUDEC
     Indication: Diabetes mellitus
     Dosage: 16 IU, QD
     Route: 058
  2. PAROXETINE HYDROCHLORIDE [Suspect]
     Active Substance: PAROXETINE HYDROCHLORIDE\PAROXETINE HYDROCHLORIDE ANHYDROUS
     Indication: Mental disorder
     Dosage: 40 MG, QD
     Route: 048
  3. ATORVASTATIN CALCIUM [Suspect]
     Active Substance: ATORVASTATIN CALCIUM
     Indication: Product used for unknown indication
     Dosage: UNK
  4. ASPIRIN [Suspect]
     Active Substance: ASPIRIN
     Indication: Prophylaxis
     Dosage: 100 MG, QD
  5. CLOZAPINE [Suspect]
     Active Substance: CLOZAPINE
     Indication: Schizophrenia
     Dosage: 100 MG, QD
  6. DOCUSATE SODIUM\SENNOSIDES A AND B [Suspect]
     Active Substance: DOCUSATE SODIUM\SENNOSIDES A AND B
     Indication: Constipation
     Dosage: 2 DOSE, QD
  7. GLICLAZIDE [Suspect]
     Active Substance: GLICLAZIDE
     Indication: Diabetes mellitus
     Dosage: 120 MG, QD
  8. EMPAGLIFLOZIN\METFORMIN HYDROCHLORIDE [Suspect]
     Active Substance: EMPAGLIFLOZIN\METFORMIN HYDROCHLORIDE
     Indication: Diabetes mellitus
     Dosage: 2 DOSE,QD
  9. MOVICOL [Suspect]
     Active Substance: POLYETHYLENE GLYCOL 3350\POTASSIUM CHLORIDE\SODIUM BICARBONATE\SODIUM CHLORIDE
     Indication: Constipation
     Dosage: 2 DOSE,QD
  10. ESOMEPRAZOLE [Suspect]
     Active Substance: ESOMEPRAZOLE
     Indication: Gastrooesophageal reflux disease
     Dosage: 20 MG, QD
  11. DIBUCAINE HYDROCHLORIDE\ZINC OXIDE [Suspect]
     Active Substance: DIBUCAINE HYDROCHLORIDE\ZINC OXIDE
     Indication: Haemorrhoids
     Dosage: OINTMENT
     Route: 061
  12. SPIRONOLACTONE [Suspect]
     Active Substance: SPIRONOLACTONE
     Indication: Ascites
     Dosage: 150 MG, QD
  13. CARVEDILOL [Suspect]
     Active Substance: CARVEDILOL
     Indication: Portal hypertension
     Dosage: 125 MG, QD
  14. FUROSEMIDE [Suspect]
     Active Substance: FUROSEMIDE
     Indication: Ascites
     Dosage: 60 MG, QD
  15. FUROSEMIDE [Suspect]
     Active Substance: FUROSEMIDE
     Dosage: 80 MG, QD
  16. LACTULOSE [Suspect]
     Active Substance: LACTULOSE
     Indication: Encephalopathy
     Dosage: 60 ML, QD
  17. NORFLOXACIN [Suspect]
     Active Substance: NORFLOXACIN
     Indication: Prophylaxis
     Dosage: 400 MG, QD
  18. RIFAXIMIN [Suspect]
     Active Substance: RIFAXIMIN
     Indication: Encephalopathy
     Dosage: 1100 MG, QD
  19. ASPIRIN [Suspect]
     Active Substance: ASPIRIN
     Indication: Cerebrovascular accident
  20. ASPIRIN [Suspect]
     Active Substance: ASPIRIN
     Indication: Thrombosis
  21. ASPIRIN [Suspect]
     Active Substance: ASPIRIN
     Indication: Myocardial infarction
     Dosage: 100 MG, QD
  22. GLICLAZIDE [Suspect]
     Active Substance: GLICLAZIDE
     Indication: Diabetes mellitus
     Dosage: 60 MG, QD

REACTIONS (2)
  - Hepatic cirrhosis [Fatal]
  - Hepatic failure [Fatal]
